FAERS Safety Report 11404027 (Version 8)
Quarter: 2018Q2

REPORT INFORMATION
  Report Type: Report from Study
  Country: US (occurrence: US)
  Receive Date: 20150821
  Receipt Date: 20180626
  Transmission Date: 20180711
  Serious: No
  Sender: FDA-Public Use
  Company Number: PHHY2015US043223

PATIENT
  Age: 40 Year
  Sex: Female

DRUGS (2)
  1. DULOXETINE. [Concomitant]
     Active Substance: DULOXETINE
     Indication: DEPRESSION
     Dosage: UNK
     Route: 065
     Dates: start: 20150421, end: 20150630
  2. GILENYA [Suspect]
     Active Substance: FINGOLIMOD HYDROCHLORIDE
     Indication: MULTIPLE SCLEROSIS
     Dosage: QD
     Route: 048

REACTIONS (12)
  - Seasonal allergy [Unknown]
  - Asthma [Unknown]
  - Vertigo [Unknown]
  - Coordination abnormal [Unknown]
  - Migraine [Unknown]
  - Vision blurred [Unknown]
  - Headache [Recovered/Resolved]
  - Palpitations [Recovered/Resolved]
  - Hypoaesthesia [Unknown]
  - Influenza [Recovered/Resolved]
  - Alanine aminotransferase increased [Unknown]
  - Influenza like illness [Recovered/Resolved]

NARRATIVE: CASE EVENT DATE: 20150312
